FAERS Safety Report 12109065 (Version 1)
Quarter: 2016Q1

REPORT INFORMATION
  Report Type: Spontaneous
  Country: TR (occurrence: TR)
  Receive Date: 20160224
  Receipt Date: 20160224
  Transmission Date: 20160526
  Serious: Yes (Hospitalization)
  Sender: FDA-Public Use
  Company Number: PHHY2016TR023532

PATIENT
  Age: 1 Year
  Sex: Female
  Weight: 12 kg

DRUGS (3)
  1. COLCHICINE. [Concomitant]
     Active Substance: COLCHICINE
     Indication: FAMILIAL MEDITERRANEAN FEVER
     Dosage: 0.25 MG, BID
     Route: 048
  2. OSELTAMIVIR [Concomitant]
     Active Substance: OSELTAMIVIR
     Indication: BRONCHIOLITIS
     Dosage: 30 MG, BID
     Route: 048
  3. ILARIS [Suspect]
     Active Substance: CANAKINUMAB
     Indication: FAMILIAL MEDITERRANEAN FEVER
     Dosage: 30 MG, EVERY 8 WEEKS
     Route: 058
     Dates: start: 20151231

REACTIONS (5)
  - Product use issue [Unknown]
  - Hypothermia [Recovering/Resolving]
  - Rotavirus infection [Unknown]
  - Abdominal distension [Recovering/Resolving]
  - Diarrhoea [Recovering/Resolving]

NARRATIVE: CASE EVENT DATE: 20151231
